FAERS Safety Report 4360681-8 (Version None)
Quarter: 2004Q2

REPORT INFORMATION
  Report Type: 
  Country: None (occurrence: None)
  Receive Date: 20040519
  Receipt Date: 20040519
  Transmission Date: 20050107
  Serious: No
  Sender: FDA-Public Use
  Company Number: None

PATIENT
  Age: 73 Year
  Sex: Male

DRUGS (1)
  1. BACTRIM [Suspect]
     Indication: SINUSITIS
     Dosage: 1 DS PO BID
     Route: 048
     Dates: start: 20040201, end: 20040225

REACTIONS (2)
  - NASAL SINUS DRAINAGE [None]
  - RASH [None]
